FAERS Safety Report 17976090 (Version 2)
Quarter: 2020Q3

REPORT INFORMATION
  Report Type: Spontaneous
  Country: CH (occurrence: CH)
  Receive Date: 20200702
  Receipt Date: 20200710
  Transmission Date: 20201103
  Serious: Yes (Hospitalization)
  Sender: FDA-Public Use
  Company Number: CH-EISAI MEDICAL RESEARCH-EC-2020-076500

PATIENT
  Age: 68 Year
  Sex: Male

DRUGS (8)
  1. FYCOMPA [Suspect]
     Active Substance: PERAMPANEL
     Dosage: DOSE REDUCED (DOSE AND FREQUENCY UNKNOWN)
     Route: 048
     Dates: start: 202006
  2. CLONAZEPAM. [Concomitant]
     Active Substance: CLONAZEPAM
     Indication: EPILEPSY
     Route: 048
     Dates: start: 202005
  3. LEVETIRACETAM DESITIN [Suspect]
     Active Substance: LEVETIRACETAM
     Indication: EPILEPSY
     Dosage: 1000 MG IN THE MORNING AND 1500 MG IN THE EVENING
     Route: 048
     Dates: start: 202005, end: 20200519
  4. LEVETIRACETAM DESITIN [Suspect]
     Active Substance: LEVETIRACETAM
     Route: 048
     Dates: start: 20200520, end: 20200525
  5. LEVETIRACETAM DESITIN [Suspect]
     Active Substance: LEVETIRACETAM
     Dosage: DOSE REDUCED (DOSE AND FREQUENCY UNKNOWN)
     Route: 048
     Dates: start: 202006
  6. FYCOMPA [Suspect]
     Active Substance: PERAMPANEL
     Route: 048
     Dates: start: 20200520, end: 20200525
  7. ZONISAMIDE. [Concomitant]
     Active Substance: ZONISAMIDE
     Indication: EPILEPSY
     Route: 048
     Dates: start: 202005
  8. FYCOMPA [Suspect]
     Active Substance: PERAMPANEL
     Indication: EPILEPSY
     Route: 048
     Dates: start: 202005, end: 20200519

REACTIONS (4)
  - Depressed level of consciousness [Recovering/Resolving]
  - Aggression [Unknown]
  - Accidental overdose [Unknown]
  - Urinary retention [Recovering/Resolving]

NARRATIVE: CASE EVENT DATE: 20200520
